FAERS Safety Report 9194069 (Version 1)
Quarter: 2013Q1

REPORT INFORMATION
  Report Type: Spontaneous
  Country: FR (occurrence: FR)
  Receive Date: 20130327
  Receipt Date: 20130327
  Transmission Date: 20140127
  Serious: Yes (Other)
  Sender: FDA-Public Use
  Company Number: FR-PFIZER INC-2013093952

PATIENT
  Age: 73 Year
  Sex: Female

DRUGS (7)
  1. REVATIO [Suspect]
     Indication: PULMONARY HYPERTENSION
     Dosage: 20 MG, 3X/DAY
     Route: 048
     Dates: start: 20100316
  2. MOPRAL [Concomitant]
  3. NOVONORM [Concomitant]
  4. DEDROGYL [Concomitant]
  5. LEVOTHYROX [Concomitant]
  6. CALCIDIA [Concomitant]
  7. TAHOR [Concomitant]

REACTIONS (2)
  - Hypotension [Recovered/Resolved]
  - Asthenia [Unknown]
